FAERS Safety Report 5977318-4 (Version None)
Quarter: 2008Q4

REPORT INFORMATION
  Report Type: 
  Country: None (occurrence: None)
  Receive Date: 20081203
  Receipt Date: 20081124
  Transmission Date: 20090506
  Serious: Yes (Other)
  Sender: FDA-Public Use
  Company Number: PHHY2008BE24618

PATIENT
  Sex: Female

DRUGS (3)
  1. ZOMETA [Suspect]
     Dosage: 4 MG, QMO
     Route: 042
     Dates: start: 20060601, end: 20080701
  2. AREDIA [Suspect]
     Dosage: UNK
     Route: 042
     Dates: start: 20080801
  3. THALIDOMIDE [Suspect]
     Route: 065

REACTIONS (2)
  - OSTEONECROSIS [None]
  - TOOTH LOSS [None]
